FAERS Safety Report 15983851 (Version 1)
Quarter: 2019Q1

REPORT INFORMATION
  Report Type: Spontaneous
  Country: US (occurrence: US)
  Receive Date: 20190219
  Receipt Date: 20190219
  Transmission Date: 20190418
  Serious: No
  Sender: FDA-Public Use
  Company Number: None

PATIENT
  Age: 20 Year
  Sex: Female
  Weight: 93.11 kg

DRUGS (4)
  1. SALINE RINSE [Concomitant]
  2. SULFAMETH/TRIMETHOPRIM [Concomitant]
     Active Substance: SULFAMETHOXAZOLE\TRIMETHOPRIM
  3. FLUCONAZOLE. [Concomitant]
     Active Substance: FLUCONAZOLE
  4. ALKA-SELTZER PLUS COLD DAY AND NIGHT [Suspect]
     Active Substance: ASPIRIN\DEXTROMETHORPHAN HYDROBROMIDE\DOXYLAMINE SUCCINATE\PHENYLEPHRINE BITARTRATE
     Indication: PULMONARY CONGESTION
     Dosage: ?          QUANTITY:2 TABLET(S);OTHER FREQUENCY:N/A;?
     Route: 048

REACTIONS (3)
  - Epistaxis [None]
  - Headache [None]
  - Nausea [None]

NARRATIVE: CASE EVENT DATE: 20190209
